FAERS Safety Report 8326752-6 (Version None)
Quarter: 2012Q2

REPORT INFORMATION
  Report Type: 
  Country: None (occurrence: None)
  Receive Date: 20120501
  Receipt Date: 20120425
  Transmission Date: 20120825
  Serious: Yes (Other)
  Sender: FDA-Public Use
  Company Number: PHHY2012IT035857

PATIENT
  Sex: Female

DRUGS (6)
  1. MADOPAR [Concomitant]
  2. CALCIPARINE [Concomitant]
  3. CITALOPRAM [Concomitant]
  4. GABAPENTIN [Concomitant]
  5. CLARITHROMYCIN [Suspect]
     Indication: ERYSIPELAS
     Dosage: 1000 MG, QD
     Route: 048
     Dates: start: 20120406, end: 20120409
  6. LASIX [Concomitant]

REACTIONS (1)
  - ANGIOEDEMA [None]
